FAERS Safety Report 7249084-6 (Version None)
Quarter: 2011Q1

REPORT INFORMATION
  Report Type: 
  Country: None (occurrence: None)
  Receive Date: 20110119
  Receipt Date: 20110107
  Transmission Date: 20110831
  Serious: Yes (Hospitalization)
  Sender: FDA-Public Use
  Company Number: 024713

PATIENT
  Age: 37 Year
  Sex: Female
  Weight: 70 kg

DRUGS (6)
  1. VALPROATE SODIUM [Suspect]
     Dosage: 2100 MG,
  2. ZONISAMIDE [Concomitant]
  3. LEVETIRACETAM [Suspect]
     Indication: COMPLEX PARTIAL SEIZURES
     Dosage: 1000 MG BID, ORAL
     Route: 048
     Dates: start: 20070627
  4. CLOBAZAM [Concomitant]
  5. PHENOBARBITAL [Concomitant]
  6. TOPIRAMATE [Concomitant]

REACTIONS (5)
  - PSYCHOMOTOR RETARDATION [None]
  - AMMONIA [None]
  - AMMONIA INCREASED [None]
  - DRUG LEVEL INCREASED [None]
  - ENCEPHALOPATHY [None]
